FAERS Safety Report 14996938 (Version 2)
Quarter: 2021Q3

REPORT INFORMATION
  Report Type: Spontaneous
  Country: US (occurrence: US)
  Receive Date: 20180611
  Receipt Date: 20210924
  Transmission Date: 20211014
  Serious: Yes (Disabling)
  Sender: FDA-Public Use
  Company Number: US-TEVA-2018-US-903350

PATIENT
  Age: 63 Year
  Sex: Female
  Weight: 72.5 kg

DRUGS (11)
  1. PERTUZUMAB. [Concomitant]
     Active Substance: PERTUZUMAB
     Indication: BREAST CANCER FEMALE
     Route: 065
     Dates: start: 20150121
  2. MELATONIN [Concomitant]
     Active Substance: MELATONIN
     Dosage: TAKE BY MOUTH NIGHTLY
     Route: 048
  3. DOCETAXEL SAGENT [Suspect]
     Active Substance: DOCETAXEL
     Indication: BREAST CANCER FEMALE
     Dosage: NO OF CYCLES: 04, EVERY 3 WEEKS
     Route: 065
     Dates: start: 20150121, end: 20150415
  4. HERCEPTIN [Concomitant]
     Active Substance: TRASTUZUMAB
     Indication: BREAST CANCER FEMALE
     Dosage: DAY 1 CYCLE 1
     Route: 065
     Dates: start: 20150121
  5. DECADRON [Concomitant]
     Active Substance: DEXAMETHASONE
     Dosage: 2 TAB IN MRN AND EVE, STARTING THE DAY BEFORE CHEMO, DAY OF CHEMO AND DAY AFTER CHEMO, EVERY 3 WEEKS
     Route: 048
     Dates: start: 20150121
  6. ZOFRAN [Concomitant]
     Active Substance: ONDANSETRON HYDROCHLORIDE
     Indication: NAUSEA
     Dosage: Q8H, PRN
     Route: 048
     Dates: start: 20150121
  7. VITAMIN B COMPLEX [Concomitant]
     Active Substance: CYANOCOBALAMIN\DEXPANTHENOL\NIACINAMIDE\PYRIDOXINE HYDROCHLORIDE\RIBOFLAVIN 5^-PHOSPHATE SODIUM\THIAMINE HYDROCHLORIDE\VITAMIN B COMPLEX
     Dosage: TAKE 1 CAPSULE BY MOUTH DAILY
     Route: 048
  8. DOCETAXEL SAGENT [Suspect]
     Active Substance: DOCETAXEL
     Dosage: NO OF CYCLES: 04, EVERY 3 WEEKS
     Route: 065
     Dates: start: 20150121, end: 20150415
  9. HERCEPTIN [Concomitant]
     Active Substance: TRASTUZUMAB
     Dosage: EVERY 3 WEEKS
     Route: 065
     Dates: start: 20150527, end: 20160621
  10. MULTIVITAMIN [Concomitant]
     Active Substance: VITAMINS
     Dosage: TAKE 1 TABLET BY MOUTH DAILY
     Route: 048
  11. COMPAZINE [Concomitant]
     Active Substance: PROCHLORPERAZINE MALEATE
     Indication: NAUSEA
     Dosage: TAKE 1 TAB Q6H, PRN
     Route: 048
     Dates: start: 20150121

REACTIONS (4)
  - Hair texture abnormal [Not Recovered/Not Resolved]
  - Hair colour changes [Unknown]
  - Alopecia areata [Not Recovered/Not Resolved]
  - Madarosis [Not Recovered/Not Resolved]

NARRATIVE: CASE EVENT DATE: 201509
